FAERS Safety Report 7828610-X (Version None)
Quarter: 2011Q4

REPORT INFORMATION
  Report Type: 
  Country: None (occurrence: None)
  Receive Date: 20111020
  Receipt Date: 20111004
  Transmission Date: 20120403
  Serious: No
  Sender: FDA-Public Use
  Company Number: US-B.I. PHARMACEUTICALS,INC./RIDGEFIELD-2011-BP-21822BP

PATIENT
  Age: 51 Year
  Sex: Male

DRUGS (3)
  1. TRUVADA [Concomitant]
     Dates: start: 20060101
  2. VIRAMUNE [Suspect]
     Indication: HIV INFECTION
     Dates: end: 20110903
  3. TEMAZEPAM [Concomitant]
     Dates: start: 20060101

REACTIONS (1)
  - MEDICATION RESIDUE [None]
